FAERS Safety Report 17880926 (Version 1)
Quarter: 2020Q2

REPORT INFORMATION
  Report Type: Spontaneous
  Country: US (occurrence: US)
  Receive Date: 20200610
  Receipt Date: 20200610
  Transmission Date: 20200714
  Serious: Yes (Disabling)
  Sender: FDA-Public Use
  Company Number: None

PATIENT
  Age: 42 Year
  Sex: Female
  Weight: 58.5 kg

DRUGS (1)
  1. NP THYROID [Suspect]
     Active Substance: LEVOTHYROXINE\LIOTHYRONINE
     Indication: AUTOIMMUNE THYROIDITIS
     Dosage: ?          QUANTITY:1 TABLET(S);?
     Route: 048

REACTIONS (7)
  - Maternal exposure during pregnancy [None]
  - Anxiety [None]
  - Hyperhidrosis [None]
  - Muscular weakness [None]
  - Fatigue [None]
  - Heart rate increased [None]
  - Hyperthyroidism [None]

NARRATIVE: CASE EVENT DATE: 20200609
